FAERS Safety Report 4313976-8 (Version None)
Quarter: 2004Q1

REPORT INFORMATION
  Report Type: 
  Country: None (occurrence: None)
  Receive Date: 20040305
  Receipt Date: 20040225
  Transmission Date: 20041129
  Serious: Yes (Life-Threatening)
  Sender: FDA-Public Use
  Company Number: 04P-028-0251199-00

PATIENT

DRUGS (6)
  1. SEVOFLURANE [Suspect]
     Indication: DRUG EXPOSURE DURING PREGNANCY
     Dosage: INHALATION
     Route: 055
  2. REMIFENTANIL [Suspect]
     Indication: DRUG EXPOSURE DURING PREGNANCY
     Dosage: INTRAVENOUS
     Route: 042
  3. OXYGEN [Concomitant]
  4. FENTANYL [Concomitant]
  5. PROPOFOL [Concomitant]
  6. ROCURONIUM [Concomitant]

REACTIONS (4)
  - BRADYCARDIA FOETAL [None]
  - CAESAREAN SECTION [None]
  - COMPLICATIONS OF MATERNAL EXPOSURE TO THERAPEUTIC DRUGS [None]
  - UMBILICAL CORD COMPRESSION [None]
